FAERS Safety Report 10154792 (Version 2)
Quarter: 2014Q2

REPORT INFORMATION
  Report Type: Report from Study
  Country: JP (occurrence: None)
  Receive Date: 20140502
  Receipt Date: 20140512
  Transmission Date: 20141212
  Serious: Yes (Hospitalization)
  Sender: FDA-Public Use
  Company Number: SYM-2014-20000

PATIENT
  Age: 84 Year
  Sex: Male

DRUGS (10)
  1. TIMOLOL MALEATE [Suspect]
     Indication: OCULAR HYPERTENSION
     Dosage: 1 GTT, 1 IN 1 D, OPHTHALMIC?
     Route: 047
     Dates: end: 20100913
  2. MK-2452 [Suspect]
     Indication: OCULAR HYPERTENSION
     Dosage: 1 GTT 1 IN 1 DAY OPHTHALMIC. (15 UG/ML) SOLUTION.
     Route: 047
     Dates: start: 20090812
  3. HYALEIN [Suspect]
     Indication: PRODUCT USED FOR UNKNOWN INDICATION
     Route: 047
  4. CRAVIT [Concomitant]
  5. RINDERON [Concomitant]
  6. DICLOD [Concomitant]
  7. MYDRIN-P (PHENYLEPHRINE HYDROCHLORIDE TROPICAMIDE) [Concomitant]
  8. NEOSYNESIN (PHENYLEPHRINE HYDROCHLORIDE) (PHENYLEPHRINE HYDROCHLORIDE) [Concomitant]
  9. CEFZON [Concomitant]
  10. SEFMAZON [Concomitant]

REACTIONS (6)
  - Cataract [None]
  - Disease progression [None]
  - Intraocular pressure increased [None]
  - Conjunctival hyperaemia [None]
  - Post procedural complication [None]
  - Drug ineffective [None]
